FAERS Safety Report 6338565-5 (Version None)
Quarter: 2009Q3

REPORT INFORMATION
  Report Type: 
  Country: None (occurrence: None)
  Receive Date: 20090901
  Receipt Date: 20090817
  Transmission Date: 20100115
  Serious: Yes (Hospitalization)
  Sender: FDA-Public Use
  Company Number: DSA_40597_2009

PATIENT
  Age: 49 Year
  Sex: Male

DRUGS (3)
  1. ENALAPRIL MALEATE [Suspect]
     Indication: HYPERTENSION
     Dosage: (5 MG QD ORAL), (2.5 MG BID ORAL), (2.5 MG ORAL)
     Route: 048
     Dates: start: 20090724, end: 20090810
  2. ENALAPRIL MALEATE [Suspect]
     Indication: HYPERTENSION
     Dosage: (5 MG QD ORAL), (2.5 MG BID ORAL), (2.5 MG ORAL)
     Route: 048
     Dates: start: 20090813
  3. ENALAPRIL MALEATE [Suspect]
     Indication: HYPERTENSION
     Dosage: (5 MG QD ORAL), (2.5 MG BID ORAL), (2.5 MG ORAL)
     Route: 048
     Dates: start: 20090821

REACTIONS (7)
  - ARTERIAL OCCLUSIVE DISEASE [None]
  - BLOOD CHOLESTEROL INCREASED [None]
  - CONDITION AGGRAVATED [None]
  - GAIT DISTURBANCE [None]
  - MUSCLE SPASMS [None]
  - MYOCARDIAL INFARCTION [None]
  - PRODUCT SUBSTITUTION ISSUE [None]
